FAERS Safety Report 4350633-6 (Version None)
Quarter: 2004Q2

REPORT INFORMATION
  Report Type: 
  Country: None (occurrence: None)
  Receive Date: 20040427
  Receipt Date: 20040420
  Transmission Date: 20050107
  Serious: Yes (Death)
  Sender: FDA-Public Use
  Company Number: 200410191BYL

PATIENT
  Age: 93 Year
  Sex: Female

DRUGS (5)
  1. CIPROFLOXACIN [Suspect]
     Indication: PNEUMONIA
     Dates: start: 20040309, end: 20040311
  2. FIRSTCIN [Concomitant]
  3. AMINOFLUID [Concomitant]
  4. POTACOL-R [Concomitant]
  5. SOLDEM 3A [Concomitant]

REACTIONS (2)
  - PNEUMONIA [None]
  - RENAL FAILURE ACUTE [None]
